FAERS Safety Report 5775282-4 (Version None)
Quarter: 2008Q2

REPORT INFORMATION
  Report Type: 
  Country: None (occurrence: None)
  Receive Date: 20080616
  Receipt Date: 20080616
  Transmission Date: 20081010
  Serious: Yes (Life-Threatening, Hospitalization, Disabling)
  Sender: FDA-Public Use
  Company Number: None

PATIENT
  Age: 46 Year
  Sex: Female
  Weight: 71 kg

DRUGS (3)
  1. BEVACIZUMAB 10MG/KG GENENTECH [Suspect]
     Indication: PANCREATIC CARCINOMA METASTATIC
     Dosage: 710MG Q2WKS IV
     Route: 042
     Dates: start: 20080320, end: 20080417
  2. GEMCITABINE [Concomitant]
  3. DOCETAXEL [Concomitant]

REACTIONS (2)
  - ILEUS [None]
  - PULMONARY EMBOLISM [None]
